FAERS Safety Report 19743474 (Version 1)
Quarter: 2021Q3

REPORT INFORMATION
  Report Type: Spontaneous
  Country: US (occurrence: US)
  Receive Date: 20210824
  Receipt Date: 20210824
  Transmission Date: 20211014
  Serious: No
  Sender: FDA-Public Use
  Company Number: US-EVOLUS, INC.-2021EV000166

PATIENT
  Age: 37 Year
  Sex: Female
  Weight: 54.48 kg

DRUGS (1)
  1. JEUVEAU [Suspect]
     Active Substance: PRABOTULINUMTOXINA-XVFS
     Indication: SKIN WRINKLING
     Dosage: 7?8 UNITS FOR CROW^S FEET
     Dates: start: 20210715

REACTIONS (4)
  - Discomfort [Unknown]
  - Eye swelling [Unknown]
  - Off label use [Unknown]
  - Contusion [Unknown]

NARRATIVE: CASE EVENT DATE: 202107
